FAERS Safety Report 25362286 (Version 2)
Quarter: 2025Q2

REPORT INFORMATION
  Report Type: Spontaneous
  Country: US (occurrence: US)
  Receive Date: 20250527
  Receipt Date: 20250610
  Transmission Date: 20250716
  Serious: Yes (Disabling)
  Sender: ROCHE
  Company Number: US-ROCHE-10000286218

PATIENT
  Age: 72 Year
  Sex: Female
  Weight: 72.57 kg

DRUGS (21)
  1. VABYSMO [Suspect]
     Active Substance: FARICIMAB-SVOA
     Indication: Neovascular age-related macular degeneration
     Route: 050
  2. VABYSMO [Suspect]
     Active Substance: FARICIMAB-SVOA
     Route: 050
     Dates: end: 202409
  3. VABYSMO [Suspect]
     Active Substance: FARICIMAB-SVOA
     Route: 050
  4. VABYSMO [Suspect]
     Active Substance: FARICIMAB-SVOA
     Route: 050
  5. AVASTIN [Suspect]
     Active Substance: BEVACIZUMAB
     Indication: Neovascular age-related macular degeneration
     Route: 050
     Dates: start: 2022
  6. EYLEA [Concomitant]
     Active Substance: AFLIBERCEPT
     Indication: Neovascular age-related macular degeneration
     Route: 050
     Dates: start: 202402, end: 202409
  7. EYLEA [Concomitant]
     Active Substance: AFLIBERCEPT
     Route: 050
     Dates: start: 202410
  8. EYLEA [Concomitant]
     Active Substance: AFLIBERCEPT
     Route: 050
  9. EYLEA [Concomitant]
     Active Substance: AFLIBERCEPT
     Route: 050
  10. CLONAZEPAM [Concomitant]
     Active Substance: CLONAZEPAM
     Indication: Restless legs syndrome
     Dosage: TAKES AT BEDTIME
     Route: 048
     Dates: start: 2000
  11. PRIMIDONE [Concomitant]
     Active Substance: PRIMIDONE
     Indication: Essential tremor
     Route: 048
     Dates: start: 1990
  12. FENOFIBRATE [Concomitant]
     Active Substance: FENOFIBRATE
     Indication: Blood cholesterol increased
     Route: 048
  13. BACLOFEN [Concomitant]
     Active Substance: BACLOFEN
     Indication: Back pain
     Route: 048
  14. TRELEGY ELLIPTA [Concomitant]
     Active Substance: FLUTICASONE FUROATE\UMECLIDINIUM BROMIDE\VILANTEROL TRIFENATATE
     Indication: Asthma
     Route: 048
  15. ALBUTEROL [Concomitant]
     Active Substance: ALBUTEROL
     Indication: Asthma
     Route: 048
  16. ALBUTEROL [Concomitant]
     Active Substance: ALBUTEROL
     Route: 048
  17. XIIDRA [Concomitant]
     Active Substance: LIFITEGRAST
     Indication: Dry eye
     Dosage: USES ONE DROP IN BOTH EYES TWICE A DAY
     Route: 047
  18. MEDROL [Concomitant]
     Active Substance: METHYLPREDNISOLONE
     Route: 047
  19. SYSTANE (HYPROMELLOSE 2910 (4000 MPA.S)) [Concomitant]
     Active Substance: HYPROMELLOSE 2910 (4000 MPA.S)
     Indication: Dry eye
     Route: 047
  20. VOLTARENACTIGO [DICLOFENAC SODIUM] [Concomitant]
     Indication: Dry eye
     Route: 047
  21. BENADRYL [Concomitant]
     Active Substance: DIPHENHYDRAMINE HYDROCHLORIDE
     Indication: Hypersensitivity
     Route: 048

REACTIONS (7)
  - Optic nerve injury [Unknown]
  - Vitreous haemorrhage [Unknown]
  - Off label use [Unknown]
  - Visual impairment [Unknown]
  - Hypermetropia [Not Recovered/Not Resolved]
  - Asthma [Unknown]
  - Off label use [Unknown]

NARRATIVE: CASE EVENT DATE: 20220201
